FAERS Safety Report 24705200 (Version 1)
Quarter: 2024Q4

REPORT INFORMATION
  Report Type: Spontaneous
  Country: MX (occurrence: MX)
  Receive Date: 20241206
  Receipt Date: 20241206
  Transmission Date: 20250115
  Serious: Yes (Death, Other)
  Sender: SERVIER
  Company Number: MX-SERVIER-S24013409

PATIENT

DRUGS (1)
  1. ONCASPAR [Suspect]
     Active Substance: PEGASPARGASE
     Indication: B-cell type acute leukaemia
     Dosage: 2750 IU
     Route: 030
     Dates: start: 20240523, end: 20240817

REACTIONS (2)
  - Pancreatitis acute [Fatal]
  - Shock [Fatal]
